FAERS Safety Report 9108196 (Version 1)
Quarter: 2013Q1

REPORT INFORMATION
  Report Type: Spontaneous
  Country: NI (occurrence: NI)
  Receive Date: 20130221
  Receipt Date: 20130221
  Transmission Date: 20140127
  Serious: Yes (Death)
  Sender: FDA-Public Use
  Company Number: NI-ABBOTT-13P-119-1043981-00

PATIENT
  Sex: 0

DRUGS (1)
  1. SURVANTA [Suspect]
     Indication: NEONATAL RESPIRATORY DISTRESS SYNDROME
     Dosage: 4MG/KG BIRTH WEIGHT PER DOSE (1 DOSE)
     Dates: start: 201212, end: 201212

REACTIONS (3)
  - Pulmonary haemorrhage [Fatal]
  - Incorrect storage of drug [Unknown]
  - Product quality issue [None]
